FAERS Safety Report 23762421 (Version 1)
Quarter: 2024Q2

REPORT INFORMATION
  Report Type: Spontaneous
  Country: DE (occurrence: DE)
  Receive Date: 20240419
  Receipt Date: 20240419
  Transmission Date: 20240715
  Serious: Yes (Other)
  Sender: FDA-Public Use
  Company Number: DE-002147023-NVSC2024DE082645

PATIENT
  Age: 84 Year
  Sex: Female

DRUGS (3)
  1. ENTRESTO [Suspect]
     Active Substance: SACUBITRIL\VALSARTAN
     Indication: Product used for unknown indication
     Dosage: UNK
     Route: 065
     Dates: end: 2023
  2. ENTRESTO [Suspect]
     Active Substance: SACUBITRIL\VALSARTAN
     Dosage: 1 DOSAGE FORM, BID (1 ? 0 ? ? )(97/103 MG)
     Route: 065
     Dates: start: 2023, end: 202404
  3. ENTRESTO [Suspect]
     Active Substance: SACUBITRIL\VALSARTAN
     Dosage: 1 DOSAGE FORM, BID (1 ? 0 ? ? )(49/51 MG)
     Route: 065
     Dates: start: 202404

REACTIONS (5)
  - Urinary retention [Unknown]
  - Blood pressure diastolic increased [Unknown]
  - Hyponatraemia [Not Recovered/Not Resolved]
  - Tinnitus [Not Recovered/Not Resolved]
  - Off label use [Recovered/Resolved]

NARRATIVE: CASE EVENT DATE: 20230101
